FAERS Safety Report 15108382 (Version 2)
Quarter: 2018Q4

REPORT INFORMATION
  Report Type: Spontaneous
  Country: JP (occurrence: JP)
  Receive Date: 20180705
  Receipt Date: 20181002
  Transmission Date: 20190204
  Serious: Yes (Life-Threatening, Hospitalization, Other)
  Sender: FDA-Public Use
  Company Number: JP-009507513-1806JPN003311J

PATIENT
  Age: 70 Year
  Sex: Male
  Weight: 42 kg

DRUGS (9)
  1. LOXOPROFEN [Concomitant]
     Active Substance: LOXOPROFEN
     Indication: CANCER PAIN
     Dosage: 60 MG, THREE TIMES A DAY
     Route: 048
     Dates: start: 20180221, end: 20180522
  2. LANSOPRAZOLE OD [Concomitant]
     Active Substance: LANSOPRAZOLE
     Indication: PROPHYLAXIS AGAINST GASTROINTESTINAL ULCER
     Dosage: 15 MG, DAILY
     Route: 048
     Dates: start: 20180221, end: 20180522
  3. OXYCONTIN [Concomitant]
     Active Substance: OXYCODONE HYDROCHLORIDE
     Indication: CANCER PAIN
     Dosage: 5 MG, TWICE A DAY
     Route: 048
     Dates: start: 20180330, end: 20180515
  4. METHYCOBAL [Concomitant]
     Active Substance: METHYLCOBALAMIN
     Indication: PARALYSIS RECURRENT LARYNGEAL NERVE
     Dosage: 0.5 MG, THREE TIMES A DAY
     Route: 048
     Dates: start: 20180205, end: 20180522
  5. KEYTRUDA [Suspect]
     Active Substance: PEMBROLIZUMAB
     Indication: NON-SMALL CELL LUNG CANCER STAGE IIIB
     Dosage: 200 MG, EVERY THREE WEEKS
     Route: 041
     Dates: start: 20180327, end: 20180419
  6. TRINOSIN [Concomitant]
     Active Substance: ADENOSINE TRIPHOSPHATE DISODIUM
     Indication: PARALYSIS RECURRENT LARYNGEAL NERVE
     Dosage: 1 G, THREE TIMES A DAY
     Route: 048
     Dates: start: 20180205, end: 20180522
  7. DENOTAS [Concomitant]
     Active Substance: CALCIUM CARBONATE\CHOLECALCIFEROL\MAGNESIUM CARBONATE
     Indication: METASTASES TO BONE
     Dosage: 2 DF, DAILY
     Route: 048
     Dates: start: 20180330, end: 20180522
  8. RANMARK [Concomitant]
     Active Substance: DENOSUMAB
     Indication: METASTASES TO BONE
     Dosage: 120 MG, UNK
     Route: 058
     Dates: start: 20180330
  9. CARBOCISTEINE [Concomitant]
     Active Substance: CARBOCYSTEINE
     Indication: PARALYSIS RECURRENT LARYNGEAL NERVE
     Dosage: 250 MG, THREE TIMES A DAY
     Route: 048
     Dates: start: 20180205, end: 20180522

REACTIONS (2)
  - Cytomegalovirus enterocolitis [Recovered/Resolved]
  - Colitis [Recovered/Resolved]

NARRATIVE: CASE EVENT DATE: 20180503
